FAERS Safety Report 15829815 (Version 1)
Quarter: 2019Q1

REPORT INFORMATION
  Report Type: Spontaneous
  Country: US (occurrence: US)
  Receive Date: 20190115
  Receipt Date: 20190115
  Transmission Date: 20190417
  Serious: No
  Sender: FDA-Public Use
  Company Number: US-PERRIGO-18US008266

PATIENT
  Age: 57 Year
  Sex: Male

DRUGS (2)
  1. TRETINOIN 0.05% CREAM (2L4) [Suspect]
     Active Substance: TRETINOIN
     Indication: SKIN WRINKLING
     Dosage: ONE APPLICATION, QHS
     Route: 061
     Dates: start: 201804
  2. TRETINOIN 0.05% CREAM (2L4) [Suspect]
     Active Substance: TRETINOIN
     Indication: ROUTINE HEALTH MAINTENANCE

REACTIONS (2)
  - No adverse event [None]
  - Off label use [Not Recovered/Not Resolved]

NARRATIVE: CASE EVENT DATE: 201804
